FAERS Safety Report 19884863 (Version 1)
Quarter: 2021Q3

REPORT INFORMATION
  Report Type: Spontaneous
  Country: US (occurrence: US)
  Receive Date: 20210927
  Receipt Date: 20210927
  Transmission Date: 20211014
  Serious: Yes (Hospitalization)
  Sender: FDA-Public Use
  Company Number: None

PATIENT
  Age: 34 Year
  Sex: Female
  Weight: 102.5 kg

DRUGS (3)
  1. TOCILIZUMAB. [Suspect]
     Active Substance: TOCILIZUMAB
     Indication: COVID-19 PNEUMONIA
     Dosage: ?          OTHER FREQUENCY:ONCE;?IS THERAPY STILL ON?GOING? YES?
     Route: 042
     Dates: start: 20210906, end: 20210906
  2. TOCILIZUMAB. [Suspect]
     Active Substance: TOCILIZUMAB
     Indication: COVID-19
     Dosage: ?          OTHER FREQUENCY:ONCE;?IS THERAPY STILL ON?GOING? YES?
     Route: 042
     Dates: start: 20210906, end: 20210906
  3. BACTRIM [Concomitant]
     Active Substance: SULFAMETHOXAZOLE\TRIMETHOPRIM
     Dates: start: 20210920, end: 20210927

REACTIONS (5)
  - Cardiac arrest [None]
  - Bronchoalveolar lavage abnormal [None]
  - Stenotrophomonas infection [None]
  - Sinus node dysfunction [None]
  - Supraventricular tachycardia [None]

NARRATIVE: CASE EVENT DATE: 20210918
